FAERS Safety Report 8352680-6 (Version None)
Quarter: 2012Q2

REPORT INFORMATION
  Report Type: 
  Country: None (occurrence: None)
  Receive Date: 20120509
  Receipt Date: 20120502
  Transmission Date: 20120825
  Serious: Yes (Other)
  Sender: FDA-Public Use
  Company Number: 2012SP013122

PATIENT
  Sex: Female

DRUGS (3)
  1. REBETOL [Suspect]
     Indication: HEPATITIS C
     Dates: start: 20120101, end: 20120201
  2. VICTRELIS [Suspect]
     Indication: HEPATITIS C
     Dosage: 800 MG;TID
     Dates: start: 20120201, end: 20120201
  3. PEGINTERFERON ALFA-2B [Suspect]
     Indication: HEPATITIS C
     Dates: start: 20120101, end: 20120201

REACTIONS (2)
  - BONE MARROW DISORDER [None]
  - ANAEMIA [None]
